FAERS Safety Report 13494751 (Version 1)
Quarter: 2017Q2

REPORT INFORMATION
  Report Type: Report from Study
  Country: None (occurrence: US)
  Receive Date: 20170428
  Receipt Date: 20170428
  Transmission Date: 20170830
  Serious: Yes (Hospitalization)
  Sender: FDA-Public Use
  Company Number: US-ABBVIE-17K-163-1902914-00

PATIENT
  Age: 56 Year
  Sex: Female
  Weight: 51.3 kg

DRUGS (3)
  1. HUMIRA [Suspect]
     Active Substance: ADALIMUMAB
     Route: 058
     Dates: start: 20170226
  2. VITAMIN D3 [Concomitant]
     Active Substance: CHOLECALCIFEROL
     Indication: NUTRITIONAL SUPPLEMENTATION
  3. HUMIRA [Suspect]
     Active Substance: ADALIMUMAB
     Indication: RHEUMATOID ARTHRITIS
     Route: 058
     Dates: start: 2007, end: 201701

REACTIONS (11)
  - Joint range of motion decreased [Recovering/Resolving]
  - Pyrexia [Recovered/Resolved]
  - Viral upper respiratory tract infection [Recovered/Resolved]
  - Chills [Recovered/Resolved]
  - Muscular weakness [Recovering/Resolving]
  - Carpal tunnel syndrome [Recovering/Resolving]
  - Tendon rupture [Not Recovered/Not Resolved]
  - Impaired healing [Not Recovered/Not Resolved]
  - Tendon rupture [Recovering/Resolving]
  - Bronchitis [Recovered/Resolved]
  - Rheumatoid arthritis [Unknown]

NARRATIVE: CASE EVENT DATE: 201609
